FAERS Safety Report 11945406 (Version 1)
Quarter: 2016Q1

REPORT INFORMATION
  Report Type: Spontaneous
  Country: US (occurrence: US)
  Receive Date: 20160125
  Receipt Date: 20160125
  Transmission Date: 20160526
  Serious: Yes (Other)
  Sender: FDA-Public Use
  Company Number: US-JNJFOC-20160108153

PATIENT
  Sex: Male

DRUGS (1)
  1. TUCKS HEMORRHOIDAL PADS [Suspect]
     Active Substance: WITCH HAZEL
     Indication: HAEMORRHOIDS
     Dosage: TWICE
     Route: 054
     Dates: start: 20160110, end: 20160110

REACTIONS (2)
  - Pain [Unknown]
  - Rectal haemorrhage [Unknown]

NARRATIVE: CASE EVENT DATE: 20160110
